FAERS Safety Report 8669085 (Version 2)
Quarter: 2013Q4

REPORT INFORMATION
  Report Type: Spontaneous
  Country: US (occurrence: US)
  Receive Date: 20120717
  Receipt Date: 20131101
  Transmission Date: 20140711
  Serious: No
  Sender: FDA-Public Use
  Company Number: US-009507513-1207USA004424

PATIENT
  Sex: 0

DRUGS (1)
  1. GYNE LOTRIMIN 7 DAY CREAM [Suspect]
     Indication: PRODUCT USED FOR UNKNOWN INDICATION
     Dosage: 1 DF, ONCE
     Route: 061

REACTIONS (1)
  - Expired drug administered [Unknown]
